FAERS Safety Report 4971107-5 (Version None)
Quarter: 2006Q1

REPORT INFORMATION
  Report Type: 
  Country: None (occurrence: None)
  Receive Date: 20060228
  Receipt Date: 20051111
  Transmission Date: 20060701
  Serious: Yes (Other)
  Sender: FDA-Public Use
  Company Number: 002#2#2005-000361

PATIENT
  Sex: Male

DRUGS (1)
  1. METOCLOPRAMIDE HYDROCHLORIDE [Suspect]
     Indication: IMPAIRED GASTRIC EMPTYING
     Dosage: ORAL
     Route: 048

REACTIONS (2)
  - DYSTONIA [None]
  - TARDIVE DYSKINESIA [None]
